FAERS Safety Report 9245316 (Version 1)
Quarter: 2013Q1

REPORT INFORMATION
  Report Type: Spontaneous
  Country: US (occurrence: None)
  Receive Date: 20121130
  Receipt Date: 20121130
  Transmission Date: 20140127
  Serious: Yes (Hospitalization)
  Sender: FDA-Public Use
  Company Number: 356214

PATIENT
  Sex: Male

DRUGS (2)
  1. NOVOLOG FLEXPEN (INSULIN ASPART) SOLUTION FOR INJECTION, 100U/ML [Suspect]
     Indication: DIABETES MELLITUS
     Dosage: SLIDING SCALE, BEFORE MEALS
     Route: 058
  2. LANTUS (INSULIN GLARGINE) [Suspect]
     Indication: DIABETES MELLITUS
     Dosage: 25 U, QD AT NIGHT
     Route: 058

REACTIONS (2)
  - Blood glucose increased [None]
  - Blood glucose decreased [None]
